FAERS Safety Report 11031256 (Version 2)
Quarter: 2015Q3

REPORT INFORMATION
  Report Type: Spontaneous
  Country: AU (occurrence: AU)
  Receive Date: 20150415
  Receipt Date: 20150720
  Transmission Date: 20151125
  Serious: Yes (Hospitalization, Other)
  Sender: FDA-Public Use
  Company Number: AU-UCBSA-2015011012

PATIENT
  Age: 7 Year
  Sex: Female
  Weight: 19 kg

DRUGS (13)
  1. KEPPRA [Suspect]
     Active Substance: LEVETIRACETAM
     Indication: EPILEPSY
     Dosage: 600 MG, 2X/DAY (BID)
     Route: 048
     Dates: start: 20110302
  2. RESPRIM FORTE [Suspect]
     Active Substance: SULFAMETHOXAZOLE\TRIMETHOPRIM
     Indication: URINARY TRACT INFECTION
     Dosage: 1/2 TABLET EVENING
     Route: 048
     Dates: start: 20121201, end: 20150227
  3. TRILEPTAL [Suspect]
     Active Substance: OXCARBAZEPINE
     Indication: EPILEPSY
     Dosage: 100 MG, ONCE DAILY (QD)
     Route: 048
     Dates: start: 20130823, end: 20150501
  4. MOVICOL [Concomitant]
     Active Substance: POLYETHYLENE GLYCOL 3350\POTASSIUM CHLORIDE\SODIUM BICARBONATE\SODIUM CHLORIDE
     Indication: CONSTIPATION
     Dosage: ? SACHET ONCE DAILY
     Route: 048
  5. INNER HEALTH PLUS [Concomitant]
     Indication: GASTROINTESTINAL DISORDER
     Dosage: 1 TABLET DAILY
     Route: 048
     Dates: end: 20150227
  6. POTASSIUM CITRATE. [Concomitant]
     Active Substance: POTASSIUM CITRATE
     Indication: KETOGENIC DIET
     Dosage: 20 MMOL, 3X/DAY (TID)
     Route: 048
     Dates: start: 20131114
  7. VIMPAT [Suspect]
     Active Substance: LACOSAMIDE
     Dosage: 50 MG, 2X/DAY (BID)
     Route: 048
     Dates: start: 20150107
  8. CENTRUM ADVANCE [Suspect]
     Active Substance: VITAMINS
     Indication: KETOGENIC DIET
     Dosage: 1 DF, ONCE DAILY (QD)
     Route: 048
     Dates: start: 201311, end: 20150227
  9. BENEFIBRE [Concomitant]
     Indication: CONSTIPATION
     Dosage: 3.5 G, ONCE DAILY (EVENING)
     Route: 048
  10. ETHICAL NUTRIENTS HI STRENGTH LIQUID FISH OIL [Concomitant]
     Indication: KETOGENIC DIET
     Dosage: 2.5 ML DAILY
     Route: 048
     Dates: end: 20150227
  11. VIMPAT [Suspect]
     Active Substance: LACOSAMIDE
     Indication: EPILEPSY
     Dosage: 25 MG, 2X/DAY (BID)
     Route: 048
     Dates: start: 20141223, end: 20150106
  12. PHENOBARBITONE [Concomitant]
     Active Substance: PHENOBARBITAL
     Indication: PRODUCT USED FOR UNKNOWN INDICATION
     Dosage: 15 MG, ONCE DAILY (QD)
  13. FRISIUM [Concomitant]
     Active Substance: CLOBAZAM
     Indication: PRODUCT USED FOR UNKNOWN INDICATION
     Dosage: 5 MG, 2X/DAY (BID)

REACTIONS (4)
  - Papilloedema [Recovered/Resolved]
  - Off label use [Unknown]
  - Intracranial pressure increased [Recovered/Resolved]
  - Urinary tract infection [Recovering/Resolving]

NARRATIVE: CASE EVENT DATE: 20121118
